FAERS Safety Report 25665411 (Version 4)
Quarter: 2025Q4

REPORT INFORMATION
  Report Type: Spontaneous
  Country: GB (occurrence: GB)
  Receive Date: 20250811
  Receipt Date: 20251119
  Transmission Date: 20260117
  Serious: Yes (Other)
  Sender: PFIZER
  Company Number: GB-PFM-2025-03742

PATIENT
  Age: 29 Year
  Sex: Female
  Weight: 109 kg

DRUGS (10)
  1. BRAFTOVI [Suspect]
     Active Substance: ENCORAFENIB
     Indication: Astrocytoma
     Dosage: 450 MG, 1X/DAY
     Route: 048
     Dates: start: 20250724, end: 20250727
  2. BRAFTOVI [Suspect]
     Active Substance: ENCORAFENIB
     Indication: BRAF V600E mutation positive
     Dosage: 300 MG, QD (1/DAY)
     Route: 048
     Dates: start: 20250807
  3. BRAFTOVI [Suspect]
     Active Substance: ENCORAFENIB
     Dosage: 300 MG, QD (1/DAY)
     Route: 048
     Dates: start: 20251021
  4. MEKTOVI [Suspect]
     Active Substance: BINIMETINIB
     Indication: Astrocytoma
     Dosage: 45 MG, 2X/DAY (EVERY 12 HOURS)
     Route: 048
     Dates: start: 20250724, end: 20250727
  5. MEKTOVI [Suspect]
     Active Substance: BINIMETINIB
     Indication: BRAF V600E mutation positive
     Dosage: 30 MG, BID (2/DAY)
     Route: 048
     Dates: start: 20250731
  6. ACETAMINOPHEN [Concomitant]
     Active Substance: ACETAMINOPHEN
     Dosage: UNK, AS NEEDED
     Route: 065
  7. HYDROCORTISONE [Concomitant]
     Active Substance: HYDROCORTISONE
     Dosage: UNK, 10 MG IN THE MORNING AND 5 MG IN THE AFTERNOON
     Route: 065
  8. LEVETRAL [Concomitant]
     Dosage: 750 MG, BID (2/DAY)
     Route: 065
  9. ESTRADIOL [Concomitant]
     Active Substance: ESTRADIOL
     Dosage: UNK, 50 PATCH TWICE WEEKLY
     Route: 065
  10. UTROGESTAN [Concomitant]
     Active Substance: PROGESTERONE
     Dosage: UNK, 200 MG TO BE TAKEN ON DAYS 1 TO 12 OF MENSTRUAL CYCLE
     Route: 065

REACTIONS (6)
  - Retinopathy [Recovered/Resolved]
  - Decreased appetite [Recovered/Resolved]
  - Fatigue [Recovered/Resolved]
  - Visual impairment [Recovered/Resolved]
  - Fatigue [Not Recovered/Not Resolved]
  - Off label use [Unknown]

NARRATIVE: CASE EVENT DATE: 20250724
